FAERS Safety Report 11727266 (Version 1)
Quarter: 2015Q4

REPORT INFORMATION
  Report Type: Report from Study
  Country: AU (occurrence: AU)
  Receive Date: 20151112
  Receipt Date: 20151112
  Transmission Date: 20160304
  Serious: Yes (Other)
  Sender: FDA-Public Use
  Company Number: AU-ABBVIE-15P-008-1494770-00

PATIENT
  Sex: Male

DRUGS (1)
  1. VIEKIRA PAK-RBV 200 [Suspect]
     Active Substance: DASABUVIR\OMBITASVIR\PARITAPREVIR\RIBAVIRIN\RITONAVIR
     Indication: HEPATITIS C
     Dosage: RIBAVIRIN DAILY DOSE: 1200MG
     Route: 048
     Dates: start: 20150914

REACTIONS (1)
  - Palpitations [Recovered/Resolved]
